FAERS Safety Report 11250019 (Version 1)
Quarter: 2015Q3

REPORT INFORMATION
  Report Type: Spontaneous
  Country: US (occurrence: US)
  Receive Date: 20150708
  Receipt Date: 20150708
  Transmission Date: 20151125
  Serious: No
  Sender: FDA-Public Use
  Company Number: US-ELI_LILLY_AND_COMPANY-US200806001402

PATIENT
  Age: 31 Year

DRUGS (1)
  1. SYMBYAX [Suspect]
     Active Substance: FLUOXETINE HYDROCHLORIDE\OLANZAPINE
     Dosage: 1 D/F, UNK
     Dates: start: 20080528

REACTIONS (8)
  - Visual acuity reduced [Not Recovered/Not Resolved]
  - Dyskinesia [Not Recovered/Not Resolved]
  - Memory impairment [Not Recovered/Not Resolved]
  - Neurological symptom [Not Recovered/Not Resolved]
  - Lack of spontaneous speech [Not Recovered/Not Resolved]
  - Muscle spasms [Not Recovered/Not Resolved]
  - Pollakiuria [Not Recovered/Not Resolved]
  - Muscle twitching [Unknown]

NARRATIVE: CASE EVENT DATE: 2008
